FAERS Safety Report 7803188-5 (Version None)
Quarter: 2011Q4

REPORT INFORMATION
  Report Type: 
  Country: None (occurrence: None)
  Receive Date: 20111007
  Receipt Date: 20110927
  Transmission Date: 20120403
  Serious: Yes (Hospitalization)
  Sender: FDA-Public Use
  Company Number: US-ELI_LILLY_AND_COMPANY-US201108000591

PATIENT
  Sex: Female
  Weight: 68.6 kg

DRUGS (13)
  1. MAGNESIUM HYDROXIDE TAB [Concomitant]
     Indication: DYSPEPSIA
     Dosage: 30 ML, EVERY 6 HRS
     Route: 048
     Dates: start: 20110826
  2. SENNA [Concomitant]
     Indication: CONSTIPATION
     Dosage: 8.6 MG, UNK
     Route: 048
     Dates: start: 20110826
  3. THORAZINE [Concomitant]
     Dosage: 100 MG, EVERY 4 HRS
     Route: 048
     Dates: start: 20110824
  4. CYANOCOBALAMIN [Concomitant]
     Dosage: 1000 MG, UNK
     Route: 048
     Dates: start: 20110825
  5. PROLIXIN [Concomitant]
     Indication: PSYCHOTIC DISORDER
     Dosage: 10 MG, BID
     Route: 048
     Dates: start: 20110819
  6. ZYPREXA RELPREVV [Suspect]
     Indication: PSYCHOTIC DISORDER
     Dosage: 300 MG, Q 2WEEKS
     Route: 030
     Dates: end: 20110715
  7. THORAZINE [Concomitant]
     Indication: AGITATION
     Dosage: 50 MG, EVERY 2 HRS
     Route: 030
     Dates: start: 20110730
  8. MULTI-VITAMINS [Concomitant]
     Dosage: UNK, QD
     Route: 048
     Dates: start: 20110825
  9. ANUSOL [Concomitant]
     Indication: HAEMORRHOIDS
     Dosage: UNK, EVERY 3 HRS
     Dates: start: 20110730
  10. MAGNESIUM HYDROXIDE [Concomitant]
     Indication: CONSTIPATION
     Dosage: 30 ML, EACH EVENING
     Route: 048
     Dates: start: 20110826
  11. COLACE [Concomitant]
     Indication: CONSTIPATION
     Dosage: 100 MG, BID
     Route: 048
  12. ACETAMINOPHEN [Concomitant]
     Indication: PAIN
     Dosage: 650 MG, EVERY 4 HRS
     Route: 048
     Dates: start: 20110826
  13. TRAZODONE HYDROCHLORIDE [Concomitant]
     Indication: AGITATION
     Dosage: 100 MG, EACH EVENING
     Route: 048
     Dates: start: 20110802

REACTIONS (4)
  - AGITATION [None]
  - HALLUCINATION, AUDITORY [None]
  - DRUG INEFFECTIVE [None]
  - AGGRESSION [None]
